FAERS Safety Report 25341987 (Version 1)
Quarter: 2025Q2

REPORT INFORMATION
  Report Type: Spontaneous
  Country: JP (occurrence: JP)
  Receive Date: 20250521
  Receipt Date: 20250521
  Transmission Date: 20250716
  Serious: Yes (Other)
  Sender: GLAND PHARMA LTD
  Company Number: JP-GLANDPHARMA-JP-2025GLNLIT01278

PATIENT
  Age: 58 Year
  Sex: Female

DRUGS (18)
  1. OXALIPLATIN [Suspect]
     Active Substance: OXALIPLATIN
     Indication: Gastric cancer stage IV
     Route: 065
     Dates: start: 202409
  2. OXALIPLATIN [Suspect]
     Active Substance: OXALIPLATIN
     Route: 065
  3. OXALIPLATIN [Suspect]
     Active Substance: OXALIPLATIN
     Route: 065
  4. OXALIPLATIN [Suspect]
     Active Substance: OXALIPLATIN
     Route: 065
  5. OXALIPLATIN [Suspect]
     Active Substance: OXALIPLATIN
     Route: 065
  6. CAPECITABINE [Suspect]
     Active Substance: CAPECITABINE
     Indication: Gastric cancer stage IV
     Route: 065
     Dates: start: 202409
  7. CAPECITABINE [Suspect]
     Active Substance: CAPECITABINE
     Route: 065
  8. CAPECITABINE [Suspect]
     Active Substance: CAPECITABINE
     Route: 065
  9. CAPECITABINE [Suspect]
     Active Substance: CAPECITABINE
     Route: 065
  10. CAPECITABINE [Suspect]
     Active Substance: CAPECITABINE
     Route: 065
  11. CAPECITABINE [Suspect]
     Active Substance: CAPECITABINE
     Route: 065
  12. ZOLBETUXIMAB [Suspect]
     Active Substance: ZOLBETUXIMAB
     Indication: Gastric cancer stage IV
     Route: 065
     Dates: start: 202409
  13. ZOLBETUXIMAB [Suspect]
     Active Substance: ZOLBETUXIMAB
     Route: 065
  14. ZOLBETUXIMAB [Suspect]
     Active Substance: ZOLBETUXIMAB
     Route: 065
  15. ZOLBETUXIMAB [Suspect]
     Active Substance: ZOLBETUXIMAB
     Route: 065
  16. ZOLBETUXIMAB [Suspect]
     Active Substance: ZOLBETUXIMAB
     Route: 065
  17. DEXAMETHASONE [Concomitant]
     Active Substance: DEXAMETHASONE
     Indication: Nausea
     Route: 065
  18. DEXAMETHASONE [Concomitant]
     Active Substance: DEXAMETHASONE
     Indication: Vomiting

REACTIONS (7)
  - Protein-losing gastroenteropathy [Unknown]
  - Decreased appetite [Unknown]
  - Anaemia [Unknown]
  - Diarrhoea [Unknown]
  - Dysgeusia [Unknown]
  - Oedema peripheral [Unknown]
  - Product use in unapproved indication [Unknown]
